FAERS Safety Report 25285925 (Version 1)
Quarter: 2025Q2

REPORT INFORMATION
  Report Type: Spontaneous
  Country: US (occurrence: US)
  Receive Date: 20250509
  Receipt Date: 20250509
  Transmission Date: 20250717
  Serious: No
  Sender: BIOGEN
  Company Number: US-BIOGEN-2024BI01289261

PATIENT
  Age: 48 Year
  Sex: Male

DRUGS (2)
  1. VUMERITY [Suspect]
     Active Substance: DIROXIMEL FUMARATE
     Indication: Multiple sclerosis
     Dosage: FOR 7 DAYS
     Route: 050
     Dates: start: 20240926, end: 202410
  2. VUMERITY [Suspect]
     Active Substance: DIROXIMEL FUMARATE
     Route: 050
     Dates: start: 20241002

REACTIONS (3)
  - Product dose omission in error [Unknown]
  - Brain fog [Unknown]
  - Memory impairment [Unknown]

NARRATIVE: CASE EVENT DATE: 20241001
